FAERS Safety Report 7093677-6 (Version None)
Quarter: 2010Q4

REPORT INFORMATION
  Report Type: 
  Country: None (occurrence: None)
  Receive Date: 20101110
  Receipt Date: 20101104
  Transmission Date: 20110411
  Serious: Yes (Death)
  Sender: FDA-Public Use
  Company Number: US-US-EMD SERONO, INC.-7025844

PATIENT
  Sex: Male
  Weight: 141 kg

DRUGS (10)
  1. REBIF [Suspect]
     Indication: MULTIPLE SCLEROSIS
  2. CLONAZEPAM [Concomitant]
     Indication: MUSCLE SPASTICITY
  3. INSULIN [Concomitant]
     Indication: DIABETES MELLITUS
  4. PRILOSEC [Concomitant]
     Indication: GASTRIC DISORDER
  5. BACLOFEN [Concomitant]
     Indication: MUSCLE SPASTICITY
  6. METFORMIN HCL [Concomitant]
     Indication: DIABETES MELLITUS
  7. ASPIRIN [Concomitant]
  8. MESTINON [Concomitant]
     Indication: MYASTHENIA GRAVIS
  9. ZOCOR [Concomitant]
     Indication: BLOOD CHOLESTEROL INCREASED
  10. LISINOPRIL [Concomitant]
     Indication: HYPERTENSION

REACTIONS (1)
  - POST PROCEDURAL COMPLICATION [None]
